FAERS Safety Report 14469059 (Version 12)
Quarter: 2018Q4

REPORT INFORMATION
  Report Type: Report from Study
  Country: CH (occurrence: CH)
  Receive Date: 20180131
  Receipt Date: 20181227
  Transmission Date: 20190204
  Serious: Yes (Hospitalization, Other)
  Sender: FDA-Public Use
  Company Number: PHHY2017CH168462

PATIENT
  Age: 89 Year
  Sex: Male
  Weight: 90.2 kg

DRUGS (14)
  1. TORASEMIDE [Suspect]
     Active Substance: TORSEMIDE
     Indication: CARDIAC FAILURE CHRONIC
     Dosage: 5 UNK, UNK
     Route: 048
     Dates: start: 20131110, end: 201801
  2. VOLTAREN [Concomitant]
     Active Substance: DICLOFENAC SODIUM
     Indication: PAIN
     Dosage: UNK, QD, DAILY AS NEEDED
     Route: 061
     Dates: start: 20171219, end: 20180106
  3. LISITRIL COMP [Suspect]
     Active Substance: HYDROCHLOROTHIAZIDE\LISINOPRIL
     Indication: CARDIAC FAILURE CHRONIC
     Dosage: 20 MG, QD
     Route: 048
     Dates: start: 20131110
  4. ASPIRIN CARDIO [Concomitant]
     Active Substance: ASPIRIN
     Indication: PRODUCT USED FOR UNKNOWN INDICATION
     Dosage: 100 MG, QD
     Route: 048
     Dates: end: 201801
  5. FLU [Concomitant]
     Active Substance: INFLUENZA VIRUS VACCINE
     Indication: PRODUCT USED FOR UNKNOWN INDICATION
     Route: 065
  6. SYMBICORT [Concomitant]
     Active Substance: BUDESONIDE\FORMOTEROL FUMARATE DIHYDRATE
     Indication: PRODUCT USED FOR UNKNOWN INDICATION
     Dosage: UNK, QD (AS NEEDED)
     Route: 055
  7. METAMIZOLE SODIUM [Suspect]
     Active Substance: METAMIZOLE SODIUM
     Indication: NECK PAIN
     Dosage: PRN
     Route: 048
  8. DAFALGAN [Concomitant]
     Active Substance: ACETAMINOPHEN
     Indication: PAIN
     Dosage: UNK UNK, QD DAILY AS NEEDED
     Route: 048
     Dates: start: 20171219, end: 20180106
  9. PARACETAMOL [Concomitant]
     Active Substance: ACETAMINOPHEN
     Indication: PAIN
     Dosage: 1000 OT, UNK
     Route: 048
     Dates: start: 20171219
  10. TORASEMIDE [Suspect]
     Active Substance: TORSEMIDE
     Dosage: 25 MG, QD
     Route: 048
     Dates: start: 201801, end: 20180215
  11. TORASEMIDE [Suspect]
     Active Substance: TORSEMIDE
     Dosage: 20 MG, QD
     Route: 048
     Dates: start: 20180215
  12. NEBIVOLOL SANDOZ [Suspect]
     Active Substance: NEBIVOLOL
     Indication: CARDIAC FAILURE CHRONIC
     Dosage: 5 MG, QD
     Route: 048
     Dates: start: 20131110
  13. TILUR [Concomitant]
     Active Substance: ACEMETACIN
     Indication: PRODUCT USED FOR UNKNOWN INDICATION
     Dosage: UNK UNK, QD, DAILY AS NEEDED
     Route: 048
     Dates: end: 2018
  14. XARELTO [Concomitant]
     Active Substance: RIVAROXABAN
     Indication: ANTICOAGULANT THERAPY
     Dosage: 20 MG, QD
     Route: 048
     Dates: start: 201801

REACTIONS (30)
  - Cataract [Not Recovered/Not Resolved]
  - Cardiac failure chronic [Unknown]
  - Concomitant disease aggravated [Not Recovered/Not Resolved]
  - Pneumonia [Recovered/Resolved]
  - Heart rate decreased [Not Recovered/Not Resolved]
  - Nausea [Recovering/Resolving]
  - Sputum abnormal [Recovering/Resolving]
  - Nocturia [Recovering/Resolving]
  - Scab [Not Recovered/Not Resolved]
  - General physical health deterioration [Not Recovered/Not Resolved]
  - Oedema peripheral [Recovered/Resolved]
  - Dyspnoea [Recovering/Resolving]
  - Productive cough [Unknown]
  - Mobility decreased [Unknown]
  - Back pain [Not Recovered/Not Resolved]
  - Ear neoplasm [Recovered/Resolved]
  - Herpes zoster [Not Recovered/Not Resolved]
  - Dizziness [Not Recovered/Not Resolved]
  - Pain in extremity [Not Recovered/Not Resolved]
  - Pulmonary oedema [Recovered/Resolved]
  - Stress [Unknown]
  - Malaise [Recovered/Resolved]
  - Insomnia [Recovering/Resolving]
  - Weight increased [Recovered/Resolved]
  - Pulmonary oedema [Recovered/Resolved]
  - Blood pressure systolic increased [Recovering/Resolving]
  - Atrial fibrillation [Recovering/Resolving]
  - Heart rate increased [Recovering/Resolving]
  - Dyspnoea exertional [Unknown]
  - Neck pain [Not Recovered/Not Resolved]

NARRATIVE: CASE EVENT DATE: 2013
